FAERS Safety Report 4845369-9 (Version None)
Quarter: 2005Q4

REPORT INFORMATION
  Report Type: 
  Country: None (occurrence: None)
  Receive Date: 20051125
  Receipt Date: 20051110
  Transmission Date: 20060501
  Serious: Yes (Death, Hospitalization)
  Sender: FDA-Public Use
  Company Number: 12854

PATIENT
  Age: 55 Year
  Sex: Male

DRUGS (3)
  1. CARBOPLATIN [Suspect]
  2. PACLITAXEL [Suspect]
     Indication: NON-SMALL CELL LUNG CANCER
  3. DMXAA [Suspect]
     Indication: NON-SMALL CELL LUNG CANCER
     Dosage: 1200 MG IV
     Route: 042
     Dates: start: 20050727, end: 20051005

REACTIONS (1)
  - DEATH [None]
